FAERS Safety Report 7688144-2 (Version None)
Quarter: 2011Q3

REPORT INFORMATION
  Report Type: 
  Country: None (occurrence: None)
  Receive Date: 20110817
  Receipt Date: 20110809
  Transmission Date: 20111222
  Serious: Yes (Hospitalization)
  Sender: FDA-Public Use
  Company Number: FI-SANOFI-AVENTIS-2011SA051064

PATIENT
  Sex: Male
  Weight: 48 kg

DRUGS (10)
  1. CLONIDINE HYDROCHLORIDE [Concomitant]
  2. SODIUM CHLORIDE [Concomitant]
  3. CABAZITAXEL [Suspect]
     Indication: PROSTATE CANCER
     Route: 042
     Dates: start: 20110331, end: 20110331
  4. IMOVANE [Concomitant]
  5. PREDNISONE [Suspect]
     Indication: PROSTATE CANCER
  6. OXYCODONE HCL [Concomitant]
  7. CABAZITAXEL [Suspect]
     Route: 042
     Dates: start: 20110622, end: 20110622
  8. BUPIVACAINE HCL [Concomitant]
  9. ESOMEPRAZOLE MAGNESIUM [Concomitant]
  10. TRENTAL [Concomitant]

REACTIONS (3)
  - PARAPARESIS [None]
  - PYREXIA [None]
  - BACK PAIN [None]
